FAERS Safety Report 8189420-X (Version None)
Quarter: 2012Q1

REPORT INFORMATION
  Report Type: 
  Country: None (occurrence: None)
  Receive Date: 20120302
  Receipt Date: 20120220
  Transmission Date: 20120608
  Serious: Yes (Hospitalization)
  Sender: FDA-Public Use
  Company Number: DSA_55244_2012

PATIENT
  Age: 99 Year
  Sex: Female

DRUGS (4)
  1. DILTIAZEM HYDROCHLORIDE [Suspect]
     Indication: PRODUCT USED FOR UNKNOWN INDICATION
     Dosage: (180 MG QD ORAL)
     Route: 048
     Dates: start: 20100401, end: 20111209
  2. COUMADIN [Concomitant]
  3. FUROSEMIDE [Concomitant]
  4. ASPIRIN [Concomitant]

REACTIONS (2)
  - INTESTINAL OBSTRUCTION [None]
  - VOMITING [None]
